FAERS Safety Report 6616635-1 (Version None)
Quarter: 2010Q1

REPORT INFORMATION
  Report Type: 
  Country: None (occurrence: None)
  Receive Date: 20100305
  Receipt Date: 20100223
  Transmission Date: 20100710
  Serious: Yes (Other)
  Sender: FDA-Public Use
  Company Number: US-ABBOTT-09P-163-0562890-00

PATIENT
  Sex: Female
  Weight: 77.18 kg

DRUGS (7)
  1. HUMIRA [Suspect]
     Indication: RHEUMATOID ARTHRITIS
     Route: 058
     Dates: start: 20070101
  2. PLAQUENIL [Concomitant]
     Indication: RHEUMATOID ARTHRITIS
     Route: 048
  3. NAPROSYN [Concomitant]
     Indication: PAIN
     Route: 048
  4. ARAVA [Concomitant]
     Indication: IMMUNE SYSTEM DISORDER
     Route: 048
  5. TOPAMAX [Concomitant]
     Indication: FIBROMYALGIA
     Route: 048
  6. DIOVAN HCT [Concomitant]
     Indication: HYPERTENSION
     Dosage: 1 - 160/12.5 MG TAB DAILY
     Route: 048
  7. AMITRIPTYLINE HCL [Concomitant]
     Indication: INSOMNIA
     Route: 048

REACTIONS (14)
  - CHEST PAIN [None]
  - CONTUSION [None]
  - DIZZINESS [None]
  - DYSPNOEA [None]
  - FEELING HOT [None]
  - HEART RATE INCREASED [None]
  - HYPERTENSION [None]
  - INJECTION SITE ERYTHEMA [None]
  - INJECTION SITE HAEMATOMA [None]
  - INJECTION SITE HAEMORRHAGE [None]
  - INJECTION SITE PAIN [None]
  - INJECTION SITE STREAKING [None]
  - LUNG DISORDER [None]
  - PALPITATIONS [None]
